FAERS Safety Report 4980133-1 (Version None)
Quarter: 2006Q2

REPORT INFORMATION
  Report Type: 
  Country: None (occurrence: None)
  Receive Date: 20060421
  Receipt Date: 20051007
  Transmission Date: 20061013
  Serious: Yes (Death, Other)
  Sender: FDA-Public Use
  Company Number: US-MERCK-0510USA05735

PATIENT
  Age: 50 Year
  Sex: Male
  Weight: 159 kg

DRUGS (1)
  1. VIOXX [Suspect]
     Indication: ARTHRITIS
     Route: 048
     Dates: start: 20010201, end: 20011101

REACTIONS (5)
  - DEATH [None]
  - MYOCARDIAL INFARCTION [None]
  - PRESCRIBED OVERDOSE [None]
  - RENAL FAILURE [None]
  - THROMBOSIS [None]
